FAERS Safety Report 10681890 (Version 4)
Quarter: 2015Q2

REPORT INFORMATION
  Report Type: Spontaneous
  Country: US (occurrence: US)
  Receive Date: 20141230
  Receipt Date: 20150507
  Transmission Date: 20150821
  Serious: Yes (Other)
  Sender: FDA-Public Use
  Company Number: US-UNITED THERAPEUTICS-UNT-2014-010787

PATIENT
  Sex: Male
  Weight: 11.34 kg

DRUGS (4)
  1. REMODULIN [Suspect]
     Active Substance: TREPROSTINIL
     Dosage: 0.030 ?G/KG, CONTINUING
     Route: 058
     Dates: start: 20140822
  2. REMODULIN [Suspect]
     Active Substance: TREPROSTINIL
     Indication: PULMONARY HYPERTENSION
     Dosage: 0.030 ?G/KG, CONTINUING
     Route: 058
     Dates: start: 20140804
  3. REMODULIN [Suspect]
     Active Substance: TREPROSTINIL
     Dosage: 0.05 ?G/KG, CONTINUING
     Route: 058
     Dates: start: 20140818
  4. REVATIO [Concomitant]
     Active Substance: SILDENAFIL CITRATE
     Indication: PRODUCT USED FOR UNKNOWN INDICATION

REACTIONS (7)
  - Infusion site haemorrhage [Unknown]
  - Infusion site pain [Unknown]
  - Device dislocation [Unknown]
  - Dermatitis contact [Unknown]
  - Underweight [Unknown]
  - Hypersensitivity [Unknown]
  - Drug dose omission [Unknown]

NARRATIVE: CASE EVENT DATE: 2014
